FAERS Safety Report 8188026-6 (Version None)
Quarter: 2012Q1

REPORT INFORMATION
  Report Type: 
  Country: None (occurrence: None)
  Receive Date: 20120306
  Receipt Date: 20120221
  Transmission Date: 20120608
  Serious: Yes (Other)
  Sender: FDA-Public Use
  Company Number: US-JUTA GMBH-2012-03276

PATIENT
  Age: 64 Year
  Sex: Female

DRUGS (3)
  1. MORPHINE SULFATE [Suspect]
     Indication: PAIN
  2. MORPHINE SULFATE [Suspect]
     Indication: PAIN IN EXTREMITY
  3. MORPHINE SULFATE [Suspect]
     Indication: SKIN SENSITISATION
     Route: 065

REACTIONS (1)
  - AGGRESSION [None]
